FAERS Safety Report 6163314-3 (Version None)
Quarter: 2009Q2

REPORT INFORMATION
  Report Type: 
  Country: None (occurrence: None)
  Receive Date: 20090422
  Receipt Date: 20090420
  Transmission Date: 20091009
  Serious: Yes (Hospitalization)
  Sender: FDA-Public Use
  Company Number: US-BRISTOL-MYERS SQUIBB COMPANY-14580070

PATIENT
  Age: 61 Year
  Sex: Female
  Weight: 59 kg

DRUGS (7)
  1. IXEMPRA KIT [Suspect]
     Indication: BREAST CANCER
     Dosage: STARTED ON 19-DEC-2008
     Route: 041
     Dates: start: 20090223, end: 20090223
  2. ADVIL [Concomitant]
  3. KEPPRA [Concomitant]
  4. PHENOBARBITAL [Concomitant]
  5. ZOMETA [Concomitant]
  6. MEGACE [Concomitant]
  7. MAGIC MOUTHWASH [Concomitant]

REACTIONS (2)
  - AGITATION [None]
  - CONFUSIONAL STATE [None]
